FAERS Safety Report 7284776-4 (Version None)
Quarter: 2011Q1

REPORT INFORMATION
  Report Type: 
  Country: None (occurrence: None)
  Receive Date: 20110210
  Receipt Date: 20110203
  Transmission Date: 20110831
  Serious: Yes (Hospitalization, Other)
  Sender: FDA-Public Use
  Company Number: FR-ASTELLAS-2011EU000340

PATIENT
  Sex: Male
  Weight: 107 kg

DRUGS (9)
  1. VESICARE [Suspect]
     Indication: BLADDER DISORDER
     Dosage: 5 MG, UNKNOWN/D
     Route: 048
     Dates: start: 20101217, end: 20110105
  2. GLUCOR [Concomitant]
     Dosage: 50 DF, TID
     Route: 048
  3. METFORMIN HCL [Concomitant]
     Dosage: 1000 DF, TID
     Route: 065
  4. PREVISCAN [Concomitant]
     Indication: BENIGN PROSTATIC HYPERPLASIA
     Dosage: UNK
     Route: 048
  5. BIPRETERAX [Concomitant]
     Dosage: 14 MG, UNKNOWN/D
     Route: 048
  6. XATRAL [Concomitant]
     Indication: BENIGN PROSTATIC HYPERPLASIA
     Dosage: 10 MG, UNKNOWN/D
     Route: 048
  7. GLYBURIDE [Concomitant]
     Dosage: 7.5 DF, BID
     Route: 048
  8. PROSCAR [Concomitant]
     Indication: BENIGN PROSTATIC HYPERPLASIA
     Dosage: UNK
     Route: 048
  9. ZYLORIC [Concomitant]
     Dosage: 1000 MG, UNKNOWN/D
     Route: 048

REACTIONS (3)
  - URINARY RETENTION [None]
  - HAEMATURIA [None]
  - ATONIC URINARY BLADDER [None]
